FAERS Safety Report 7243931-X (Version None)
Quarter: 2011Q1

REPORT INFORMATION
  Report Type: 
  Country: None (occurrence: None)
  Receive Date: 20110125
  Receipt Date: 20110120
  Transmission Date: 20110831
  Serious: Yes (Hospitalization)
  Sender: FDA-Public Use
  Company Number: B0694811B

PATIENT
  Sex: Female
  Weight: 2.9 kg

DRUGS (4)
  1. INSULIN [Concomitant]
  2. KEPPRA [Suspect]
     Dosage: 500MG TWICE PER DAY
     Dates: start: 20091129
  3. PANENZA [Concomitant]
     Dates: start: 20091202, end: 20091202
  4. LAMICTAL [Suspect]

REACTIONS (8)
  - TREMOR [None]
  - HYPOGLYCAEMIA NEONATAL [None]
  - AGITATION [None]
  - PAIN [None]
  - ILL-DEFINED DISORDER [None]
  - OXYGEN SATURATION DECREASED [None]
  - CYANOSIS [None]
  - DRUG EXPOSURE DURING PREGNANCY [None]
